FAERS Safety Report 6264084-0 (Version None)
Quarter: 2009Q3

REPORT INFORMATION
  Report Type: 
  Country: None (occurrence: None)
  Receive Date: 20090708
  Receipt Date: 20090708
  Transmission Date: 20100115
  Serious: Yes (Other)
  Sender: FDA-Public Use
  Company Number: None

PATIENT
  Age: 47 Year
  Sex: Female
  Weight: 68.0396 kg

DRUGS (1)
  1. ZICAM NO-DRIP LIQUID NASAL GEL EXTREME CONGESTION RELIEF ZICAM [Suspect]
     Indication: NASAL DECONGESTION THERAPY
     Dosage: ONE SQUIRT TWICE DAILY NASAL
     Route: 045
     Dates: start: 20081126, end: 20081128

REACTIONS (2)
  - ANOSMIA [None]
  - PAROSMIA [None]
